FAERS Safety Report 10416156 (Version 2)
Quarter: 2014Q3

REPORT INFORMATION
  Report Type: Spontaneous
  Country: US (occurrence: US)
  Receive Date: 20140828
  Receipt Date: 20140828
  Transmission Date: 20150326
  Serious: Yes (Death, Other)
  Sender: FDA-Public Use
  Company Number: US-BAXTER-2014BAX049768

PATIENT
  Age: 4 Week
  Sex: Female
  Weight: 3 kg

DRUGS (7)
  1. PRISMASOL B22GK4/0 [Suspect]
     Active Substance: ANHYDROUS DEXTROSE\LACTIC ACID\MAGNESIUM CHLORIDE\POTASSIUM CHLORIDE\SODIUM BICARBONATE\SODIUM CHLORIDE
     Indication: RENAL REPLACEMENT THERAPY
  2. PRISMASOL B22GK4/0 [Suspect]
     Active Substance: ANHYDROUS DEXTROSE\LACTIC ACID\MAGNESIUM CHLORIDE\POTASSIUM CHLORIDE\SODIUM BICARBONATE\SODIUM CHLORIDE
     Indication: MULTI-ORGAN FAILURE
     Route: 042
  3. CALCIUM [Suspect]
     Active Substance: CALCIUM
     Indication: PRODUCT USED FOR UNKNOWN INDICATION
     Route: 042
  4. BICARBONATE [Suspect]
     Active Substance: BICARBONATE ION
     Indication: OFF LABEL USE
     Route: 042
  5. BICARBONATE [Suspect]
     Active Substance: BICARBONATE ION
     Indication: RENAL REPLACEMENT THERAPY
  6. CALCIUM [Suspect]
     Active Substance: CALCIUM
     Indication: MULTI-ORGAN FAILURE
  7. CITRATE [Suspect]
     Active Substance: CITRIC ACID MONOHYDRATE
     Indication: PRODUCT USED FOR UNKNOWN INDICATION
     Route: 042

REACTIONS (11)
  - Cardiac arrest [Recovered/Resolved]
  - Therapy cessation [Unknown]
  - Multimorbidity [Unknown]
  - Thrombosis in device [None]
  - Unevaluable event [None]
  - Multi-organ failure [Fatal]
  - Bradycardia [Unknown]
  - Off label use [None]
  - Intestinal perforation [Unknown]
  - Calcium ionised decreased [None]
  - Blood pH decreased [None]

NARRATIVE: CASE EVENT DATE: 20140811
